FAERS Safety Report 11106953 (Version 1)
Quarter: 2015Q2

REPORT INFORMATION
  Report Type: Spontaneous
  Country: DE (occurrence: DE)
  Receive Date: 20150512
  Receipt Date: 20150512
  Transmission Date: 20150821
  Serious: Yes (Life-Threatening, Hospitalization)
  Sender: FDA-Public Use
  Company Number: DE-SA-2015SA058918

PATIENT
  Age: 48 Year
  Sex: Male

DRUGS (10)
  1. METAMIZOLE [Concomitant]
     Active Substance: METAMIZOLE
  2. SUCRALFATE. [Concomitant]
     Active Substance: SUCRALFATE
  3. PANTOZOL [Concomitant]
     Active Substance: PANTOPRAZOLE SODIUM
  4. SIMVASTATIN. [Concomitant]
     Active Substance: SIMVASTATIN
  5. OXYCODONE [Concomitant]
     Active Substance: OXYCODONE
     Dosage: FREQUENCY: 5 TIMES A DAY
  6. MOTILIUM [Concomitant]
     Active Substance: DOMPERIDONE
  7. AUBAGIO [Suspect]
     Active Substance: TERIFLUNOMIDE
     Indication: MYELITIS
     Route: 048
     Dates: start: 20141007, end: 20150308
  8. ACETYLSALICYLIC ACID [Concomitant]
     Active Substance: ASPIRIN
  9. XARELTO [Concomitant]
     Active Substance: RIVAROXABAN
  10. CIPROFLOXACIN. [Concomitant]
     Active Substance: CIPROFLOXACIN

REACTIONS (1)
  - Abdominal abscess [Not Recovered/Not Resolved]

NARRATIVE: CASE EVENT DATE: 20150308
